FAERS Safety Report 25367550 (Version 2)
Quarter: 2025Q2

REPORT INFORMATION
  Report Type: Spontaneous
  Country: FR (occurrence: FR)
  Receive Date: 20250528
  Receipt Date: 20250605
  Transmission Date: 20250716
  Serious: Yes (Other)
  Sender: MERCK SHARP & DOHME LLC
  Company Number: FR-009507513-2285972

PATIENT
  Age: 39 Year
  Sex: Female

DRUGS (4)
  1. SOTATERCEPT [Suspect]
     Active Substance: SOTATERCEPT
     Indication: Pulmonary arterial hypertension
     Dosage: FOR THE FOURTH INJECTION, THE PATIENT RECEIVED 0.6 MG/KG
     Route: 058
  2. SOTATERCEPT [Suspect]
     Active Substance: SOTATERCEPT
     Dates: start: 202501
  3. SOTATERCEPT [Suspect]
     Active Substance: SOTATERCEPT
     Dates: start: 20250516
  4. SOTATERCEPT [Suspect]
     Active Substance: SOTATERCEPT

REACTIONS (6)
  - Cardiac failure [Unknown]
  - Incorrect dose administered [Unknown]
  - Neck pain [Unknown]
  - Injection site pain [Unknown]
  - Chest pain [Unknown]
  - Headache [Unknown]
